FAERS Safety Report 13247945 (Version 2)
Quarter: 2017Q1

REPORT INFORMATION
  Report Type: Spontaneous
  Country: US (occurrence: US)
  Receive Date: 20170217
  Receipt Date: 20170224
  Transmission Date: 20170428
  Serious: Yes (Life-Threatening, Other)
  Sender: FDA-Public Use
  Company Number: PHEH2017US004751

PATIENT
  Sex: Female

DRUGS (4)
  1. XANAX [Concomitant]
     Active Substance: ALPRAZOLAM
     Indication: PRODUCT USED FOR UNKNOWN INDICATION
     Dosage: UNK
     Route: 065
  2. NITRO [Concomitant]
     Active Substance: NITROGLYCERIN
     Indication: PRODUCT USED FOR UNKNOWN INDICATION
     Route: 065
  3. EXLAX [Concomitant]
     Indication: PRODUCT USED FOR UNKNOWN INDICATION
     Route: 065
  4. RECLAST [Suspect]
     Active Substance: ZOLEDRONIC ACID
     Indication: PRODUCT USED FOR UNKNOWN INDICATION
     Dosage: UNK
     Route: 065
     Dates: start: 2014

REACTIONS (24)
  - Skin discolouration [Unknown]
  - Poor peripheral circulation [Unknown]
  - Malaise [Unknown]
  - Burning sensation [Unknown]
  - Feeling abnormal [Unknown]
  - Apparent death [Unknown]
  - Constipation [Unknown]
  - Haemophilia [Unknown]
  - Skin exfoliation [Unknown]
  - Gait disturbance [Unknown]
  - Weight decreased [Unknown]
  - Hypertension [Unknown]
  - Multiple organ dysfunction syndrome [Unknown]
  - Systemic lupus erythematosus [Unknown]
  - Eye disorder [Unknown]
  - Photophobia [Unknown]
  - Eye pain [Unknown]
  - Blood cholesterol increased [Unknown]
  - Hair disorder [Unknown]
  - Oedema [Unknown]
  - Autoimmune disorder [Unknown]
  - Eye irritation [Unknown]
  - Pain [Unknown]
  - Osteoporosis [Unknown]
